FAERS Safety Report 14932946 (Version 2)
Quarter: 2018Q3

REPORT INFORMATION
  Report Type: Spontaneous
  Country: US (occurrence: US)
  Receive Date: 20180524
  Receipt Date: 20180709
  Transmission Date: 20181010
  Serious: Yes (Other)
  Sender: FDA-Public Use
  Company Number: US-PFIZER INC-2018208847

PATIENT
  Age: 75 Year
  Sex: Male
  Weight: 68.27 kg

DRUGS (2)
  1. BOSULIF [Suspect]
     Active Substance: BOSUTINIB MONOHYDRATE
     Indication: BONE CANCER
     Dosage: 500 MG, DAILY (5 TABLETS A DAY IN EVENING)
     Dates: start: 20180401, end: 2018
  2. BOSULIF [Suspect]
     Active Substance: BOSUTINIB MONOHYDRATE
     Dosage: 100 MG, 3X/DAY
     Route: 048
     Dates: start: 2018, end: 201806

REACTIONS (4)
  - Diarrhoea [Recovered/Resolved]
  - Cardiac dysfunction [Recovering/Resolving]
  - Gait disturbance [Unknown]
  - Product use in unapproved indication [Unknown]

NARRATIVE: CASE EVENT DATE: 2018
